FAERS Safety Report 7543003-0 (Version None)
Quarter: 2011Q2

REPORT INFORMATION
  Report Type: 
  Country: None (occurrence: None)
  Receive Date: 20110613
  Receipt Date: 20110601
  Transmission Date: 20111010
  Serious: No
  Sender: FDA-Public Use
  Company Number: PHHY2011NL24198

PATIENT
  Sex: Male
  Weight: 89 kg

DRUGS (6)
  1. TASIGNA [Suspect]
     Dosage: 300 MG, BID
     Dates: start: 20110323
  2. SIMVASTATIN [Concomitant]
     Dosage: 10 MG, UNK
  3. TASIGNA [Suspect]
     Indication: CHRONIC MYELOID LEUKAEMIA
     Dosage: 400 MG, BID
     Route: 048
     Dates: end: 20110305
  4. ACENOCOUMAROL [Concomitant]
  5. COZAAR [Concomitant]
  6. CARVEDILOL [Concomitant]

REACTIONS (2)
  - MYALGIA [None]
  - BONE PAIN [None]
